FAERS Safety Report 14122961 (Version 1)
Quarter: 2017Q4

REPORT INFORMATION
  Report Type: Spontaneous
  Country: US (occurrence: US)
  Receive Date: 20171024
  Receipt Date: 20171024
  Transmission Date: 20180321
  Serious: Yes (Other)
  Sender: FDA-Public Use
  Company Number: None

PATIENT
  Sex: Female
  Weight: 108.9 kg

DRUGS (16)
  1. FUROSEMIDE. [Concomitant]
     Active Substance: FUROSEMIDE
  2. VENTOLIN HFA [Concomitant]
     Active Substance: ALBUTEROL SULFATE
  3. IBUPROFEN. [Concomitant]
     Active Substance: IBUPROFEN
  4. LEVOTHYROXINE. [Concomitant]
     Active Substance: LEVOTHYROXINE
  5. CENTRUM WOMEN [Concomitant]
     Active Substance: VITAMINS
  6. CALTRATE WITH VITAMIN D [Concomitant]
     Active Substance: CALCIUM CARBONATE\CHOLECALCIFEROL
  7. FISH OIL [Concomitant]
     Active Substance: FISH OIL
  8. LOTRIMIN ULTRA [Concomitant]
     Active Substance: BUTENAFINE HYDROCHLORIDE
  9. IBRANCE [Suspect]
     Active Substance: PALBOCICLIB
     Indication: BREAST CANCER
     Route: 048
     Dates: start: 20170927
  10. VITAMIN D [Concomitant]
     Active Substance: CHOLECALCIFEROL
  11. ACETAMINOPHEN. [Concomitant]
     Active Substance: ACETAMINOPHEN
  12. AMOXICILLIN. [Concomitant]
     Active Substance: AMOXICILLIN
  13. EXCEDRIN MIGRAINE [Concomitant]
     Active Substance: ACETAMINOPHEN\ASPIRIN\CAFFEINE
  14. ZOMETA [Concomitant]
     Active Substance: ZOLEDRONIC ACID
  15. POTASSIUM CHLORIDE. [Concomitant]
     Active Substance: POTASSIUM CHLORIDE
  16. BENZONATATE. [Concomitant]
     Active Substance: BENZONATATE

REACTIONS (1)
  - White blood cell count decreased [None]
